FAERS Safety Report 15256131 (Version 3)
Quarter: 2018Q4

REPORT INFORMATION
  Report Type: Report from Study
  Country: US (occurrence: US)
  Receive Date: 20180808
  Receipt Date: 20181010
  Transmission Date: 20190204
  Serious: Yes (Disabling)
  Sender: FDA-Public Use
  Company Number: US-SA-2017SA177609

PATIENT
  Age: 55 Year
  Sex: Female

DRUGS (2)
  1. ALEMTUZUMAB [Suspect]
     Active Substance: ALEMTUZUMAB
     Indication: MULTIPLE SCLEROSIS
     Dosage: 12 MG,QD
     Route: 041
     Dates: start: 20170911, end: 20170915
  2. FUROSEMIDE. [Concomitant]
     Active Substance: FUROSEMIDE
     Indication: PERIPHERAL SWELLING
     Dosage: UNK, UNK
     Route: 065

REACTIONS (23)
  - Restlessness [Unknown]
  - Blood pressure abnormal [Unknown]
  - Pallor [Recovered/Resolved]
  - Urticaria [Recovered/Resolved]
  - Rash [Recovered/Resolved]
  - Anxiety [Recovered/Resolved]
  - Hypoaesthesia [Not Recovered/Not Resolved]
  - Pollakiuria [Unknown]
  - Epistaxis [Recovered/Resolved]
  - Cystitis escherichia [Unknown]
  - Dysuria [Unknown]
  - Limb injury [Unknown]
  - Muscular weakness [Recovered/Resolved]
  - Peripheral swelling [Recovering/Resolving]
  - Swelling face [Recovering/Resolving]
  - Loss of personal independence in daily activities [Not Recovered/Not Resolved]
  - Hypersomnia [Recovered/Resolved]
  - Urinary incontinence [Not Recovered/Not Resolved]
  - Heart rate increased [Recovered/Resolved]
  - Fatigue [Recovered/Resolved]
  - Dysstasia [Unknown]
  - Hypotonia [Not Recovered/Not Resolved]
  - Urinary tract infection [Unknown]

NARRATIVE: CASE EVENT DATE: 201709
